FAERS Safety Report 18171694 (Version 1)
Quarter: 2020Q3

REPORT INFORMATION
  Report Type: Report from Study
  Country: None (occurrence: JP)
  Receive Date: 20200820
  Receipt Date: 20200820
  Transmission Date: 20201103
  Serious: Yes (Hospitalization, Other)
  Sender: FDA-Public Use
  Company Number: JP-ABBVIE-20K-087-3529755-00

PATIENT
  Sex: Female

DRUGS (3)
  1. PREDNISOLONE. [Suspect]
     Active Substance: PREDNISOLONE
     Indication: PRODUCT USED FOR UNKNOWN INDICATION
     Route: 048
  2. METHOTREXATE. [Concomitant]
     Active Substance: METHOTREXATE
     Indication: PRODUCT USED FOR UNKNOWN INDICATION
     Dosage: 2 TABLETS, TWICE A DAY/ONCE A WEEK
     Route: 048
  3. HUMIRA [Suspect]
     Active Substance: ADALIMUMAB
     Indication: PRODUCT USED FOR UNKNOWN INDICATION
     Route: 058

REACTIONS (12)
  - Pyrexia [Recovered/Resolved]
  - Fall [Unknown]
  - Mobility decreased [Recovered/Resolved]
  - Pain [Recovered/Resolved]
  - Weight decreased [Unknown]
  - Contusion [Unknown]
  - Peripheral swelling [Unknown]
  - Body temperature decreased [Unknown]
  - Neoplasm malignant [Unknown]
  - Ageusia [Unknown]
  - Feeding disorder [Unknown]
  - Inflammation [Unknown]

NARRATIVE: CASE EVENT DATE: 2019
